FAERS Safety Report 4887140-8 (Version None)
Quarter: 2006Q1

REPORT INFORMATION
  Report Type: 
  Country: None (occurrence: None)
  Receive Date: 20060120
  Receipt Date: 20060112
  Transmission Date: 20060701
  Serious: Yes (Other)
  Sender: FDA-Public Use
  Company Number: US-MERCK-0601USA01617

PATIENT
  Age: 50 Year
  Sex: Female

DRUGS (1)
  1. VYTORIN [Suspect]
     Indication: HYPERLIPIDAEMIA
     Route: 048
     Dates: end: 20060111

REACTIONS (3)
  - ABDOMINAL PAIN [None]
  - ABDOMINAL SYMPTOM [None]
  - NAUSEA [None]
